FAERS Safety Report 4463039-6 (Version None)
Quarter: 2004Q3

REPORT INFORMATION
  Report Type: 
  Country: None (occurrence: None)
  Receive Date: 20040928
  Receipt Date: 20040917
  Transmission Date: 20050211
  Serious: Yes (Hospitalization)
  Sender: FDA-Public Use
  Company Number: ZONI002017

PATIENT
  Age: 39 Year
  Sex: Female

DRUGS (1)
  1. EXCEGRAN (ZONISAMIDE) [Suspect]
     Indication: CEREBROVASCULAR DISORDER
     Dosage: 200 MG, 2 IN 1 D, ORAL
     Route: 048
     Dates: start: 20030128, end: 20030327

REACTIONS (9)
  - CEREBRAL HAEMORRHAGE [None]
  - DERMATITIS EXFOLIATIVE [None]
  - DRUG HYPERSENSITIVITY [None]
  - HEPATIC FUNCTION ABNORMAL [None]
  - HUMAN HERPES VIRUS 6 SEROLOGY POSITIVE [None]
  - LYMPHADENOPATHY [None]
  - PNEUMONIA [None]
  - SPLENOMEGALY [None]
  - THERAPY NON-RESPONDER [None]
